FAERS Safety Report 13238706 (Version 2)
Quarter: 2017Q1

REPORT INFORMATION
  Report Type: Spontaneous
  Country: HR (occurrence: HR)
  Receive Date: 20170216
  Receipt Date: 20170216
  Transmission Date: 20170428
  Serious: Yes (Hospitalization)
  Sender: FDA-Public Use
  Company Number: HR-TEVA-733212ACC

PATIENT
  Age: 34 Year
  Sex: Female

DRUGS (8)
  1. RISPERIDONE. [Suspect]
     Active Substance: RISPERIDONE
     Indication: ENCEPHALITIS AUTOIMMUNE
     Dosage: DOSAGE FORM: UNSPECIFIED
     Route: 065
  2. CLOZAPINE. [Suspect]
     Active Substance: CLOZAPINE
     Indication: ENCEPHALITIS AUTOIMMUNE
     Dosage: DOSAGE FORM: UNSPECIFIED
     Route: 065
  3. OLANZAPINE. [Suspect]
     Active Substance: OLANZAPINE
     Indication: ENCEPHALITIS AUTOIMMUNE
     Dosage: DOSAGE FORM: UNSPECIFIED
     Route: 065
  4. FLUVOXAMINE [Suspect]
     Active Substance: FLUVOXAMINE
     Indication: ENCEPHALITIS AUTOIMMUNE
     Dosage: DOSAGE FORM: UNSPECIFIED
     Route: 065
  5. DIAZEPAM. [Suspect]
     Active Substance: DIAZEPAM
     Indication: ENCEPHALITIS AUTOIMMUNE
     Dosage: DOSAGE FORM: UNSPECIFIED
     Route: 065
  6. SULPIRID [Suspect]
     Active Substance: SULPIRIDE
     Indication: ENCEPHALITIS AUTOIMMUNE
     Dosage: DOSAGE FORM: UNSPECIFIED
     Route: 065
  7. FLUZEPAM (FLURAZEPAM HYDROCHLORIDE) [Suspect]
     Active Substance: FLURAZEPAM HYDROCHLORIDE
     Indication: ENCEPHALITIS AUTOIMMUNE
     Dosage: DOSAGE FORM: UNSPECIFIED
     Route: 065
  8. HALDOL [Suspect]
     Active Substance: HALOPERIDOL
     Indication: ENCEPHALITIS AUTOIMMUNE
     Dosage: DOSAGE FORM: UNSPECIFIED
     Route: 065

REACTIONS (11)
  - Mutism [Recovered/Resolved]
  - Dyskinesia [Recovered/Resolved]
  - Aggression [Recovered/Resolved]
  - Off label use [Unknown]
  - Confusional state [Recovered/Resolved]
  - Anxiety [Recovered/Resolved]
  - Stupor [Recovered/Resolved]
  - Product use issue [Unknown]
  - Negativism [Recovered/Resolved]
  - Paranoia [Recovered/Resolved]
  - Somnolence [Recovered/Resolved]
